FAERS Safety Report 17699294 (Version 3)
Quarter: 2020Q2

REPORT INFORMATION
  Report Type: Spontaneous
  Country: ES (occurrence: ES)
  Receive Date: 20200423
  Receipt Date: 20200504
  Transmission Date: 20200714
  Serious: Yes (Other)
  Sender: FDA-Public Use
  Company Number: NVSC2020ES107485

PATIENT
  Age: 56 Year
  Sex: Female

DRUGS (7)
  1. TOBRAMYCIN. [Suspect]
     Active Substance: TOBRAMYCIN
     Indication: ANTIBIOTIC THERAPY
     Dosage: 1 GTT, Q6H
     Route: 061
     Dates: start: 20191129, end: 20191206
  2. KETOTIFEN [Suspect]
     Active Substance: KETOTIFEN
     Indication: CONJUNCTIVITIS ALLERGIC
     Dosage: UNK
     Route: 047
  3. POVIDONE-IODINE. [Suspect]
     Active Substance: POVIDONE-IODINE
     Indication: THERAPEUTIC PROCEDURE
     Dosage: UNK
     Route: 065
     Dates: start: 20191129, end: 20191129
  4. COMBIGAN [Suspect]
     Active Substance: BRIMONIDINE TARTRATE\TIMOLOL MALEATE
     Indication: INTRAOCULAR PRESSURE INCREASED
     Dosage: 1 DF, Q12H
     Route: 047
     Dates: start: 20191208, end: 20191212
  5. KETOTIFEN [Suspect]
     Active Substance: KETOTIFEN
     Dosage: 1 GTT, Q12H
     Route: 047
     Dates: start: 20191212, end: 20191227
  6. OZURDEX [Suspect]
     Active Substance: DEXAMETHASONE
     Indication: DIABETIC RETINAL OEDEMA
     Dosage: 0.7 MG, QD
     Route: 031
     Dates: start: 20191129
  7. MONOPROST [Concomitant]
     Active Substance: LATANOPROST
     Indication: PRODUCT USED FOR UNKNOWN INDICATION
     Dosage: 2 GTT, QD
     Route: 047

REACTIONS (5)
  - Intraocular pressure increased [Recovered/Resolved]
  - Uveitis [Not Recovered/Not Resolved]
  - Iridocyclitis [Recovering/Resolving]
  - Conjunctivitis allergic [Recovered/Resolved]
  - Angle closure glaucoma [Not Recovered/Not Resolved]

NARRATIVE: CASE EVENT DATE: 20191208
